FAERS Safety Report 7884958-4 (Version None)
Quarter: 2011Q4

REPORT INFORMATION
  Report Type: 
  Country: None (occurrence: None)
  Receive Date: 20111102
  Receipt Date: 20111021
  Transmission Date: 20120403
  Serious: Yes (Other)
  Sender: FDA-Public Use
  Company Number: DE-NOVOPROD-332721

PATIENT

DRUGS (7)
  1. COSOPT [Concomitant]
     Indication: PRODUCT USED FOR UNKNOWN INDICATION
  2. NORDITROPIN [Suspect]
     Indication: HYPOPITUITARISM
     Dosage: 0.15 MG, QD
     Route: 058
     Dates: start: 20080101, end: 20110727
  3. LEVOTHYROXINE SODIUM [Concomitant]
     Dosage: 50 UG, QD
     Dates: start: 20070501
  4. HYDROCORTISON                      /00028601/ [Concomitant]
     Dosage: 10 MG, UNK
     Dates: start: 20070501
  5. NEBIDO [Concomitant]
     Route: 030
  6. LORZAAR [Concomitant]
     Indication: PRODUCT USED FOR UNKNOWN INDICATION
  7. TAMSULOSIN HCL [Concomitant]
     Indication: PRODUCT USED FOR UNKNOWN INDICATION

REACTIONS (1)
  - PROSTATE CANCER [None]
